FAERS Safety Report 22099976 (Version 1)
Quarter: 2023Q1

REPORT INFORMATION
  Report Type: Spontaneous
  Country: GB (occurrence: GB)
  Receive Date: 20230315
  Receipt Date: 20230315
  Transmission Date: 20230418
  Serious: Yes (Hospitalization)
  Sender: FDA-Public Use
  Company Number: GB-Eisai Medical Research-EC-2023-136148

PATIENT
  Age: 16 Year
  Sex: Male
  Weight: 53.3 kg

DRUGS (1)
  1. LENVATINIB [Suspect]
     Active Substance: LENVATINIB
     Indication: Osteosarcoma metastatic
     Route: 048
     Dates: end: 20230301

REACTIONS (3)
  - Thrombocytopenia [Recovering/Resolving]
  - Epistaxis [Recovering/Resolving]
  - Haemothorax [Recovering/Resolving]

NARRATIVE: CASE EVENT DATE: 20230101
